FAERS Safety Report 5239847-0 (Version None)
Quarter: 2007Q1

REPORT INFORMATION
  Report Type: 
  Country: None (occurrence: None)
  Receive Date: 20070216
  Receipt Date: 20070212
  Transmission Date: 20070707
  Serious: Yes (Hospitalization)
  Sender: FDA-Public Use
  Company Number: GB-ROXANE LABORATORIES, INC-2007-BP-02102RO

PATIENT
  Age: 54 Year
  Sex: Female

DRUGS (4)
  1. AZATHIOPRINE [Suspect]
     Indication: PEMPHIGUS
     Dosage: 50 MG DAILY
     Route: 048
  2. CEPHALEXIN [Suspect]
     Indication: URINARY TRACT INFECTION
     Dosage: 500 MG TID
     Route: 048
  3. PROCHLORPERAZINE [Suspect]
     Indication: NAUSEA
  4. METFORMIN HCL [Concomitant]
     Route: 048

REACTIONS (12)
  - ACUTE GENERALISED EXANTHEMATOUS PUSTULOSIS [None]
  - ARTHRALGIA [None]
  - DRUG HYPERSENSITIVITY [None]
  - DYSPNOEA [None]
  - DYSURIA [None]
  - HEADACHE [None]
  - HYPOTENSION [None]
  - MALAISE [None]
  - MYALGIA [None]
  - NAUSEA [None]
  - PYREXIA [None]
  - VOMITING [None]
